APPROVED DRUG PRODUCT: GEMCITABINE HYDROCHLORIDE
Active Ingredient: GEMCITABINE HYDROCHLORIDE
Strength: EQ 200MG BASE/VIAL
Dosage Form/Route: INJECTABLE;INJECTION
Application: A090663 | Product #001
Applicant: HAMELN RDS GMBH
Approved: Sep 10, 2012 | RLD: No | RS: No | Type: DISCN